FAERS Safety Report 7730051-0 (Version None)
Quarter: 2011Q3

REPORT INFORMATION
  Report Type: 
  Country: None (occurrence: None)
  Receive Date: 20110906
  Receipt Date: 20110822
  Transmission Date: 20111222
  Serious: Yes (Death, Other)
  Sender: FDA-Public Use
  Company Number: JP-ROCHE-798773

PATIENT
  Sex: Male

DRUGS (60)
  1. PREDNISOLONE [Suspect]
     Route: 042
     Dates: start: 20101217, end: 20101219
  2. PREDNISOLONE [Suspect]
     Route: 048
     Dates: start: 20110213, end: 20110215
  3. PREDNISOLONE [Suspect]
     Route: 048
     Dates: start: 20110216, end: 20110216
  4. ADALAT [Concomitant]
     Route: 048
     Dates: start: 20101228, end: 20110422
  5. AMARYL [Concomitant]
     Route: 048
     Dates: start: 20110314, end: 20110321
  6. AMARYL [Concomitant]
     Route: 048
     Dates: start: 20110322, end: 20110422
  7. VITAJECT [Concomitant]
     Dosage: DRUG: VITAJECT(MULTIPLE VITAMIN FOR TOTAL PARENTERAL NUTRITION)
     Route: 042
     Dates: start: 20101202, end: 20101203
  8. HUMULIN R [Concomitant]
     Dosage: DRUG: HUMULIN R(INSULIN HUMAN(GENETICAL RECOMBINATION))
     Route: 042
     Dates: start: 20101202, end: 20101203
  9. PREDNISOLONE [Suspect]
     Indication: CASTLEMAN'S DISEASE
     Dosage: ROUTE: INTRAVENOUS (NOT OTHERWISE SPECIFIED)
     Route: 042
     Dates: start: 20101129, end: 20101203
  10. PREDNISOLONE [Suspect]
     Route: 042
     Dates: start: 20110216, end: 20110216
  11. HICALIQ [Concomitant]
     Dosage: ROUTE: INTRAVENOUS (NOT OTHERWISE SPECIFIED)
     Route: 042
     Dates: start: 20110114, end: 20110212
  12. HUMULIN R [Concomitant]
     Dosage: ROUTE: INTRAVENOUS (NOT OTHERWISE SPECIFIED)
     Route: 042
     Dates: start: 20110115, end: 20110115
  13. PREDNISOLONE [Suspect]
     Route: 042
     Dates: start: 20110217, end: 20110311
  14. SOLU-CORTEF [Concomitant]
     Route: 042
     Dates: start: 20100101, end: 20100101
  15. ALLOPURINOL [Concomitant]
     Route: 048
     Dates: start: 20110121, end: 20110422
  16. DIOVAN [Concomitant]
     Route: 048
     Dates: start: 20101209, end: 20101215
  17. LECICARBON [Concomitant]
     Dosage: NOTE: AT THE OBSTIPATION
     Route: 054
     Dates: start: 20101212, end: 20101222
  18. MORPHINE [Concomitant]
     Dosage: DOSE FORM: PERORAL LIQUID PREPARATION
     Route: 048
     Dates: start: 20110128, end: 20110422
  19. VITAJECT [Concomitant]
     Dosage: ROUTE: INTRAVENOUS (NOT OTHERWISE SPECIFIED)
     Route: 042
     Dates: start: 20110114, end: 20110212
  20. HUMULIN R [Concomitant]
     Route: 042
     Dates: start: 20110116, end: 20110116
  21. HUMULIN R [Concomitant]
     Route: 042
     Dates: start: 20110119, end: 20110119
  22. HUMULIN R [Concomitant]
     Route: 042
     Dates: start: 20110120, end: 20110120
  23. HUMULIN R [Concomitant]
     Route: 042
     Dates: start: 20110121, end: 20110131
  24. HUMULIN R [Concomitant]
     Route: 042
     Dates: start: 20110201, end: 20110202
  25. HUMULIN R [Concomitant]
     Route: 042
     Dates: start: 20110206, end: 20110208
  26. FUROSEMIDE [Suspect]
     Dosage: ROUTE: INTRAVENOUS (NOT OTHERWISE SPECIFIED)
     Route: 042
     Dates: start: 20101126, end: 20101201
  27. DIOVAN [Concomitant]
     Route: 048
     Dates: start: 20101211, end: 20110422
  28. HUMULIN R [Concomitant]
     Route: 042
     Dates: start: 20110118, end: 20110118
  29. HUMULIN R [Concomitant]
     Route: 042
     Dates: start: 20110203, end: 20110205
  30. HUMULIN R [Concomitant]
     Route: 042
     Dates: start: 20110423, end: 20110424
  31. ADALAT [Concomitant]
     Route: 048
     Dates: start: 20101130, end: 20101214
  32. ACETAMINOPHEN [Concomitant]
     Dosage: DRUG: CALONAL(ACETAMINOPHEN)
     Route: 048
     Dates: start: 20101215, end: 20101224
  33. MAGMITT [Concomitant]
     Route: 048
     Dates: start: 20110310, end: 20110422
  34. ACYCLOVIR [Concomitant]
     Route: 048
     Dates: start: 20110311, end: 20110422
  35. PURSENNID [Concomitant]
     Route: 048
     Dates: start: 20110314, end: 20110422
  36. TOCILIZUMAB [Suspect]
     Route: 041
     Dates: start: 20110201, end: 20110413
  37. PREDNISOLONE [Suspect]
     Route: 042
     Dates: start: 20101220, end: 20110211
  38. PREDNISOLONE [Suspect]
     Route: 042
     Dates: start: 20110212, end: 20110212
  39. FUROSEMIDE [Suspect]
     Route: 042
     Dates: start: 20110218, end: 20110314
  40. LANSOPRAZOLE [Concomitant]
     Route: 048
     Dates: start: 20101129, end: 20110422
  41. KALIMATE [Concomitant]
     Dosage: DOSE FORM: POWDERED MEDICINE
     Route: 048
     Dates: start: 20101130, end: 20101216
  42. ALLOPURINOL [Concomitant]
     Route: 048
     Dates: start: 20101101, end: 20110120
  43. ARGAMATE [Concomitant]
     Dosage: DOSE FORM: JELLY
     Route: 048
     Dates: start: 20101222, end: 20110303
  44. HUMULIN R [Concomitant]
     Route: 042
     Dates: start: 20110209, end: 20110212
  45. TOCILIZUMAB [Suspect]
     Indication: CASTLEMAN'S DISEASE
     Route: 041
     Dates: start: 20101204, end: 20101218
  46. PREDNISOLONE [Suspect]
     Route: 042
     Dates: start: 20101216, end: 20101216
  47. PREDNISOLONE [Suspect]
     Route: 042
     Dates: start: 20110424, end: 20110424
  48. PREDNISOLONE [Suspect]
     Route: 048
     Dates: start: 20110212, end: 20110212
  49. SOLU-CORTEF [Concomitant]
     Dosage: ROUTE: INTRAVENOUS (NOT OTHERWISE SPECIFIED)
     Route: 042
     Dates: start: 20101204, end: 20101218
  50. SOLU-CORTEF [Concomitant]
     Route: 042
     Dates: start: 20110201, end: 20110413
  51. PRIMPERAN TAB [Concomitant]
     Route: 048
     Dates: start: 20101129, end: 20101216
  52. ADALAT [Concomitant]
     Route: 048
     Dates: start: 20101211, end: 20101214
  53. HICALIQ [Concomitant]
     Dosage: DRUG: HICALIQ RF(INTRAVENOUS HYPERALIMENTATIVE BASIC SOLUTION)
     Route: 042
     Dates: start: 20101128, end: 20101203
  54. HUMULIN R [Concomitant]
     Route: 042
     Dates: start: 20110117, end: 20110117
  55. TOCILIZUMAB [Suspect]
     Route: 041
     Dates: start: 20110101, end: 20110101
  56. FUROSEMIDE [Suspect]
     Indication: CASTLEMAN'S DISEASE
     Route: 048
     Dates: start: 20110314, end: 20110422
  57. FLUCONAZOLE [Concomitant]
     Route: 048
     Dates: start: 20101225, end: 20110317
  58. AMARYL [Concomitant]
     Route: 048
     Dates: start: 20110311, end: 20110313
  59. KIDMIN [Concomitant]
     Dosage: DRUG: KIDMIN(AMINO ACID PREPARATIONS FOR RENAL INSUFFICIENCY)
     Route: 042
     Dates: start: 20101128, end: 20101203
  60. KIDMIN [Concomitant]
     Route: 042
     Dates: start: 20110114, end: 20110212

REACTIONS (5)
  - DEATH [None]
  - HYPOKALAEMIA [None]
  - MENINGITIS [None]
  - BLOOD PRESSURE INCREASED [None]
  - PALPITATIONS [None]
